FAERS Safety Report 13362051 (Version 1)
Quarter: 2017Q1

REPORT INFORMATION
  Report Type: Spontaneous
  Country: US (occurrence: US)
  Receive Date: 20170323
  Receipt Date: 20170323
  Transmission Date: 20170429
  Serious: Yes (Other)
  Sender: FDA-Public Use
  Company Number: US-AUROBINDO-AUR-APL-2017-31110

PATIENT
  Age: 61 Year
  Sex: Male

DRUGS (4)
  1. CRIZOTINIB [Concomitant]
     Active Substance: CRIZOTINIB
     Indication: LUNG ADENOCARCINOMA STAGE IV
     Route: 065
  2. DEXAMETHASONE. [Suspect]
     Active Substance: DEXAMETHASONE
     Indication: LUNG ADENOCARCINOMA STAGE IV
     Dosage: UNK
     Route: 065
  3. PREDNISONE. [Suspect]
     Active Substance: PREDNISONE
     Indication: LUNG ADENOCARCINOMA STAGE IV
     Dosage: UNK
     Route: 065
  4. HYDROCODONE [Concomitant]
     Active Substance: HYDROCODONE
     Indication: INTERVERTEBRAL DISC DEGENERATION
     Dosage: UNK

REACTIONS (1)
  - Substance-induced psychotic disorder [Unknown]
